FAERS Safety Report 18202005 (Version 1)
Quarter: 2020Q3

REPORT INFORMATION
  Report Type: Spontaneous
  Country: IT (occurrence: IT)
  Receive Date: 20200827
  Receipt Date: 20200827
  Transmission Date: 20201103
  Serious: Yes (Death)
  Sender: FDA-Public Use
  Company Number: IT-HIKMA PHARMACEUTICALS USA INC.-IT-H14001-20-51956

PATIENT
  Age: 69 Year
  Sex: Female

DRUGS (3)
  1. ENDOXAN [Suspect]
     Active Substance: CYCLOPHOSPHAMIDE
     Indication: SARCOIDOSIS
     Route: 042
     Dates: start: 20200803, end: 20200803
  2. UROMITEXAN [Suspect]
     Active Substance: MESNA
     Indication: PREMEDICATION
     Route: 065
     Dates: start: 20200803, end: 20200803
  3. ONDANSETRONE HIKMA [Suspect]
     Active Substance: ONDANSETRON
     Indication: PREMEDICATION
     Route: 042
     Dates: start: 20200803, end: 20200803

REACTIONS (3)
  - Sepsis [Fatal]
  - Myocardial ischaemia [Fatal]
  - Cardiogenic shock [Fatal]

NARRATIVE: CASE EVENT DATE: 20200803
